FAERS Safety Report 19400180 (Version 1)
Quarter: 2021Q2

REPORT INFORMATION
  Report Type: Spontaneous
  Country: DO (occurrence: DO)
  Receive Date: 20210610
  Receipt Date: 20210610
  Transmission Date: 20210717
  Serious: Yes (Hospitalization, Other)
  Sender: FDA-Public Use
  Company Number: DO-PFIZER INC-2021634347

PATIENT
  Sex: Male

DRUGS (1)
  1. XALKORI [Suspect]
     Active Substance: CRIZOTINIB
     Dosage: UNK

REACTIONS (7)
  - Cerebral infarction [Unknown]
  - Vision blurred [Unknown]
  - Vertigo [Unknown]
  - Headache [Unknown]
  - Vomiting [Unknown]
  - Cerebral venous sinus thrombosis [Unknown]
  - Myalgia [Unknown]
